FAERS Safety Report 23622064 (Version 1)
Quarter: 2024Q1

REPORT INFORMATION
  Report Type: Spontaneous
  Country: US (occurrence: None)
  Receive Date: 20240311
  Receipt Date: 20240311
  Transmission Date: 20240410
  Serious: Yes (Life-Threatening)
  Sender: FDA-Public Use
  Company Number: None

PATIENT
  Age: 82 Year
  Sex: Male
  Weight: 58.5 kg

DRUGS (4)
  1. DAPTOMYCIN [Suspect]
     Active Substance: DAPTOMYCIN
     Dosage: OTHER FREQUENCY : EVERY OTHER DAY;?
     Route: 042
     Dates: start: 20240129, end: 20240304
  2. metapropanal 12.5 mg bid [Concomitant]
  3. amilodipine 5-10 mg qd [Concomitant]
  4. Rosuvastastine Eliquis [Concomitant]

REACTIONS (6)
  - Muscular weakness [None]
  - Bedridden [None]
  - Interstitial lung disease [None]
  - Pneumonia [None]
  - C-reactive protein increased [None]
  - Red blood cell sedimentation rate increased [None]

NARRATIVE: CASE EVENT DATE: 20240218
